FAERS Safety Report 4314178-1 (Version None)
Quarter: 2004Q1

REPORT INFORMATION
  Report Type: 
  Country: None (occurrence: None)
  Receive Date: 20040308
  Receipt Date: 20040308
  Transmission Date: 20041129
  Serious: Yes (Other)
  Sender: FDA-Public Use
  Company Number: None

PATIENT
  Age: 74 Year
  Sex: Female
  Weight: 49.5 kg

DRUGS (1)
  1. DEXAMETHASONE 10MG/ML ESI [Suspect]
     Dosage: 10 MG IV
     Route: 042
     Dates: start: 20040306

REACTIONS (4)
  - GENITAL PRURITUS FEMALE [None]
  - GRIMACING [None]
  - PRURITUS [None]
  - SCRATCH [None]
